FAERS Safety Report 5492527-9 (Version None)
Quarter: 2007Q4

REPORT INFORMATION
  Report Type: 
  Country: None (occurrence: None)
  Receive Date: 20071022
  Receipt Date: 20071010
  Transmission Date: 20080405
  Serious: Yes (Other)
  Sender: FDA-Public Use
  Company Number: CA-SHR-CA-2004-028532

PATIENT
  Age: 53 Year
  Sex: Female
  Weight: 72 kg

DRUGS (5)
  1. BETASERON [Suspect]
     Dosage: 9.6 MIU, 3X/WEEK
     Route: 058
     Dates: start: 20040621, end: 20040809
  2. LITHIUM [Suspect]
     Dosage: 300 MG, 3X/DAY
     Dates: end: 20040101
  3. LITHIUM [Suspect]
     Dosage: 325 MG, 3X/DAY
     Dates: start: 20040101
  4. AMITRIPTYLINE HCL [Concomitant]
     Indication: SLEEP DISORDER
     Dosage: 10 MG, BED T.
  5. HYDROCHLOROTHIAZIDE [Concomitant]
     Indication: HYPERTENSION
     Dosage: 25 MG, 1X/DAY

REACTIONS (4)
  - ANXIETY [None]
  - BIPOLAR DISORDER [None]
  - DRUG INTERACTION [None]
  - PARANOIA [None]
